FAERS Safety Report 5894758-2 (Version None)
Quarter: 2008Q3

REPORT INFORMATION
  Report Type: 
  Country: None (occurrence: None)
  Receive Date: 20080924
  Receipt Date: 20080709
  Transmission Date: 20090109
  Serious: No
  Sender: FDA-Public Use
  Company Number: US-ASTRAZENECA-2008UW08381

PATIENT
  Age: 67 Year
  Sex: Male

DRUGS (4)
  1. SEROQUEL [Suspect]
     Indication: BIPOLAR DISORDER
     Route: 048
     Dates: start: 20070907
  2. SEROQUEL [Suspect]
     Route: 048
  3. ZOLOFT [Concomitant]
  4. SYNTHROID [Concomitant]

REACTIONS (2)
  - PAIN [None]
  - PARAESTHESIA [None]
